FAERS Safety Report 21921101 (Version 1)
Quarter: 2023Q1

REPORT INFORMATION
  Report Type: Spontaneous
  Country: US (occurrence: US)
  Receive Date: 20230127
  Receipt Date: 20230127
  Transmission Date: 20230417
  Serious: No
  Sender: FDA-Public Use
  Company Number: US-BAYER-2023A004410

PATIENT
  Age: 65 Year
  Sex: Female

DRUGS (1)
  1. ALEVE PM [Suspect]
     Active Substance: DIPHENHYDRAMINE HYDROCHLORIDE\NAPROXEN SODIUM
     Indication: Pain
     Dosage: 2 DF TWO CAPLETS
     Route: 048

REACTIONS (3)
  - Hypersensitivity [Recovered/Resolved]
  - Illness [Recovered/Resolved]
  - Drug ineffective [Recovered/Resolved]
